FAERS Safety Report 4663424-3 (Version None)
Quarter: 2005Q2

REPORT INFORMATION
  Report Type: 
  Country: None (occurrence: None)
  Receive Date: 20050511
  Receipt Date: 20050201
  Transmission Date: 20051028
  Serious: Yes (Other)
  Sender: FDA-Public Use
  Company Number: 394460

PATIENT
  Age: 42 Year
  Sex: Female
  Weight: 51.3 kg

DRUGS (4)
  1. PEGASYS [Suspect]
     Indication: HEPATITIS C
     Dosage: 180 MCG 1 PER WEEK; SUBCUTANEOUS
     Route: 058
     Dates: start: 20040511, end: 20050322
  2. COPEGUS [Suspect]
     Indication: HEPATITIS C
     Dosage: 400 MG 2 PER DAY; ORAL
     Route: 048
     Dates: start: 20040511, end: 20050322
  3. XANAX [Concomitant]
  4. MULTIVITAMIN [Concomitant]

REACTIONS (13)
  - ALOPECIA [None]
  - CHEST PAIN [None]
  - DECREASED APPETITE [None]
  - DEPRESSION [None]
  - DYSPNOEA EXERTIONAL [None]
  - INSOMNIA [None]
  - NEUTROPHIL COUNT DECREASED [None]
  - PLATELET COUNT DECREASED [None]
  - PRURITUS [None]
  - RASH [None]
  - RED BLOOD CELL COUNT DECREASED [None]
  - WEIGHT DECREASED [None]
  - WHITE BLOOD CELL COUNT DECREASED [None]
